FAERS Safety Report 15821193 (Version 1)
Quarter: 2019Q1

REPORT INFORMATION
  Report Type: Spontaneous
  Country: US (occurrence: US)
  Receive Date: 20190112
  Receipt Date: 20190112
  Transmission Date: 20190417
  Serious: Yes (Death)
  Sender: FDA-Public Use
  Company Number: None

PATIENT
  Age: 75 Year
  Sex: Male
  Weight: 74.25 kg

DRUGS (14)
  1. DESYREL [Concomitant]
     Active Substance: TRAZODONE HYDROCHLORIDE
  2. TEGRETOL [Concomitant]
     Active Substance: CARBAMAZEPINE
  3. IRON [Concomitant]
     Active Substance: IRON
  4. MIDODRINE [Suspect]
     Active Substance: MIDODRINE
     Indication: ORTHOSTATIC HYPOTENSION
     Dosage: ?          QUANTITY:1 TABLET(S);?
     Route: 048
     Dates: start: 20180301, end: 20180905
  5. ARICEPT [Concomitant]
     Active Substance: DONEPEZIL HYDROCHLORIDE
  6. ZETIA [Concomitant]
     Active Substance: EZETIMIBE
  7. VITAMIN B12 [Concomitant]
     Active Substance: CYANOCOBALAMIN
  8. VITAMIN D [Concomitant]
     Active Substance: CHOLECALCIFEROL
  9. ASPIRIN. [Concomitant]
     Active Substance: ASPIRIN
  10. DEPAKOTE [Concomitant]
     Active Substance: DIVALPROEX SODIUM
  11. LEVOTHRYOXINE [Concomitant]
     Active Substance: LEVOTHYROXINE
  12. PROZAC [Concomitant]
     Active Substance: FLUOXETINE HYDROCHLORIDE
  13. NAMENDA [Concomitant]
     Active Substance: MEMANTINE HYDROCHLORIDE
  14. FOLIC ACID. [Concomitant]
     Active Substance: FOLIC ACID

REACTIONS (7)
  - Confusional state [None]
  - Drug effect incomplete [None]
  - Cerebral haemorrhage [None]
  - Malaise [None]
  - Disorientation [None]
  - Respiratory distress [None]
  - Loss of consciousness [None]

NARRATIVE: CASE EVENT DATE: 20180906
